FAERS Safety Report 14298892 (Version 1)
Quarter: 2017Q4

REPORT INFORMATION
  Report Type: Spontaneous
  Country: US (occurrence: US)
  Receive Date: 20171218
  Receipt Date: 20171218
  Transmission Date: 20180321
  Serious: No
  Sender: FDA-Public Use
  Company Number: None

PATIENT
  Age: 89 Year
  Sex: Female
  Weight: 88.45 kg

DRUGS (17)
  1. METOPROTOL SUCCINATE [Concomitant]
  2. LEVOTHYROXINE. [Concomitant]
     Active Substance: LEVOTHYROXINE
  3. VITAMIN D [Concomitant]
     Active Substance: CHOLECALCIFEROL
  4. CALCIUM [Concomitant]
     Active Substance: CALCIUM
  5. FISH OIL [Concomitant]
     Active Substance: FISH OIL
  6. LOVASTATIN. [Concomitant]
     Active Substance: LOVASTATIN
  7. B1 [Concomitant]
  8. VITAMIN B12 [Concomitant]
     Active Substance: CYANOCOBALAMIN
  9. LOSARTAN. [Concomitant]
     Active Substance: LOSARTAN
  10. AREDS [Concomitant]
     Active Substance: MINERALS\VITAMINS
  11. GEMFIBROZIL. [Concomitant]
     Active Substance: GEMFIBROZIL
  12. FLAXSEED [Concomitant]
     Active Substance: FLAX SEED
  13. GARLIC. [Concomitant]
     Active Substance: GARLIC
  14. JANUMET XR [Suspect]
     Active Substance: METFORMIN HYDROCHLORIDE\SITAGLIPTIN PHOSPHATE
     Indication: DIABETES MELLITUS
     Dosage: 1 PILL ONCE DAILY BY MOUTH
     Route: 048
     Dates: start: 20171115, end: 20171122
  15. GLIMEPIRIDE. [Concomitant]
     Active Substance: GLIMEPIRIDE
  16. GABAPENTIN. [Concomitant]
     Active Substance: GABAPENTIN
  17. ASPIRIN. [Concomitant]
     Active Substance: ASPIRIN

REACTIONS (4)
  - Abdominal pain upper [None]
  - Joint swelling [None]
  - Peripheral swelling [None]
  - Constipation [None]

NARRATIVE: CASE EVENT DATE: 20171115
